FAERS Safety Report 15813402 (Version 1)
Quarter: 2019Q1

REPORT INFORMATION
  Report Type: Spontaneous
  Country: US (occurrence: US)
  Receive Date: 20190111
  Receipt Date: 20190111
  Transmission Date: 20190417
  Serious: Yes (Disabling, Other)
  Sender: FDA-Public Use
  Company Number: None

PATIENT
  Age: 57 Year
  Sex: Female
  Weight: 103.5 kg

DRUGS (12)
  1. RANITIDINE. [Concomitant]
     Active Substance: RANITIDINE
  2. XOLAIR [Suspect]
     Active Substance: OMALIZUMAB
     Indication: HYPERSENSITIVITY
     Dosage: ?          QUANTITY:1 375 MG. INJECTED;OTHER FREQUENCY:375 MG/EVERY 2 WK;OTHER ROUTE:SUBCUTANEOUS INJECTION?
     Route: 058
     Dates: start: 20190104, end: 20190104
  3. PROBIOTICS [Concomitant]
     Active Substance: PROBIOTICS NOS
  4. XOLAIR [Suspect]
     Active Substance: OMALIZUMAB
     Indication: ASTHMA
     Dosage: ?          QUANTITY:1 375 MG. INJECTED;OTHER FREQUENCY:375 MG/EVERY 2 WK;OTHER ROUTE:SUBCUTANEOUS INJECTION?
     Route: 058
     Dates: start: 20190104, end: 20190104
  5. XOLAIR [Suspect]
     Active Substance: OMALIZUMAB
     Indication: ANAPHYLACTIC REACTION
     Dosage: ?          QUANTITY:1 375 MG. INJECTED;OTHER FREQUENCY:375 MG/EVERY 2 WK;OTHER ROUTE:SUBCUTANEOUS INJECTION?
     Route: 058
     Dates: start: 20190104, end: 20190104
  6. MONTELUKAST [Concomitant]
     Active Substance: MONTELUKAST SODIUM
  7. SYNTHROID [Concomitant]
     Active Substance: LEVOTHYROXINE SODIUM
  8. ESTRADIOL. [Concomitant]
     Active Substance: ESTRADIOL
  9. ALLEGRA [Concomitant]
     Active Substance: FEXOFENADINE HYDROCHLORIDE
  10. TRANILAST [Concomitant]
     Active Substance: TRANILAST
  11. VITAMIN D [Concomitant]
     Active Substance: CHOLECALCIFEROL
  12. KETOTIFEN [Concomitant]
     Active Substance: KETOTIFEN

REACTIONS (3)
  - Rubber sensitivity [None]
  - Device issue [None]
  - Product use complaint [None]

NARRATIVE: CASE EVENT DATE: 20190104
